FAERS Safety Report 21119185 (Version 1)
Quarter: 2022Q3

REPORT INFORMATION
  Report Type: Spontaneous
  Country: US (occurrence: None)
  Receive Date: 20220721
  Receipt Date: 20220721
  Transmission Date: 20221026
  Serious: Yes (Other)
  Sender: FDA-Public Use
  Company Number: None

PATIENT
  Age: 77 Year
  Sex: Female
  Weight: 72.9 kg

DRUGS (7)
  1. MAGNESIUM CITRATE LEMON [Suspect]
     Active Substance: MAGNESIUM CITRATE
     Indication: Colonoscopy
     Dosage: OTHER QUANTITY : 1 10 FL OZ;?OTHER FREQUENCY : 1  TIME;?
     Route: 048
     Dates: start: 20220221, end: 20220221
  2. ATORVASTATIN [Concomitant]
     Active Substance: ATORVASTATIN
  3. VITAMIN D3 [Concomitant]
     Active Substance: CHOLECALCIFEROL
  4. VITAMINS [Concomitant]
     Active Substance: VITAMINS
  5. Fish oil-omega [Concomitant]
  6. Gymnema [Concomitant]
  7. Sylvestre [Concomitant]

REACTIONS (2)
  - Throat irritation [None]
  - Pharyngitis streptococcal [None]

NARRATIVE: CASE EVENT DATE: 20220221
